FAERS Safety Report 10888113 (Version 1)
Quarter: 2015Q1

REPORT INFORMATION
  Report Type: Spontaneous
  Country: US (occurrence: US)
  Receive Date: 20150304
  Receipt Date: 20150304
  Transmission Date: 20150721
  Serious: No
  Sender: FDA-Public Use
  Company Number: US-AMGEN-USASP2014016903

PATIENT
  Age: 41 Year
  Sex: Female
  Weight: 56.23 kg

DRUGS (7)
  1. IBUPROFEN. [Concomitant]
     Active Substance: IBUPROFEN
     Dosage: 200 MG, QD
     Route: 048
  2. FOLIC ACID. [Concomitant]
     Active Substance: FOLIC ACID
     Dosage: 1 MG, QD
     Route: 048
  3. ENBREL [Suspect]
     Active Substance: ETANERCEPT
     Indication: RHEUMATOID ARTHRITIS
     Dosage: 50 MG, QWK
     Route: 058
     Dates: start: 20131226
  4. NASONEX [Concomitant]
     Active Substance: MOMETASONE FUROATE
     Dosage: 50 MEG/ACTUATION SPRAY
  5. METHOTREXATE SODIUM. [Concomitant]
     Active Substance: METHOTREXATE SODIUM
     Dosage: 2.5 MG, 8 TABLETS BY MOUNTH EVERY WEEK, 96 TABLET TAKING
     Route: 048
  6. PLAQUENIL [Concomitant]
     Active Substance: HYDROXYCHLOROQUINE SULFATE
     Dosage: 200 MG, 1.5 TABS Q DAILY, 135 TABLET TAKING
  7. PREDNISONE. [Concomitant]
     Active Substance: PREDNISONE
     Dosage: 10 MG TABLET, 30 MG X 3 DAYS, 20 MG X 3 DAYS, 10 M10 MG TABLET, 30 MG X 3 DAYS, 20 MG X 3 DAYS

REACTIONS (23)
  - Back pain [Unknown]
  - Fatigue [Unknown]
  - Arthropathy [Unknown]
  - Mobility decreased [Unknown]
  - Pain in extremity [Unknown]
  - Muscle spasms [Unknown]
  - Dry eye [Unknown]
  - Injection site pruritus [Not Recovered/Not Resolved]
  - Injection site recall reaction [Not Recovered/Not Resolved]
  - Dry mouth [Unknown]
  - Neck pain [Unknown]
  - Eye irritation [Unknown]
  - Arthralgia [Unknown]
  - Sensory disturbance [Unknown]
  - Injection site paraesthesia [Not Recovered/Not Resolved]
  - Upper respiratory tract infection [Unknown]
  - Malaise [Unknown]
  - Asthenia [Unknown]
  - Rheumatoid arthritis [Unknown]
  - Spinal pain [Unknown]
  - Insomnia [Unknown]
  - Swelling [Unknown]
  - Musculoskeletal stiffness [Unknown]

NARRATIVE: CASE EVENT DATE: 20140217
